FAERS Safety Report 4509326-4 (Version None)
Quarter: 2004Q4

REPORT INFORMATION
  Report Type: 
  Country: None (occurrence: None)
  Receive Date: 20041025
  Receipt Date: 20040806
  Transmission Date: 20050328
  Serious: Yes (Hospitalization)
  Sender: FDA-Public Use
  Company Number: US-JNJFOC-20040702956

PATIENT
  Age: 64 Year
  Sex: Female

DRUGS (11)
  1. INFLIXIMAB (INFLIXIMAB, RECOMBINANT) LYOPHILIZED POWDER [Suspect]
     Indication: RHEUMATOID ARTHRITIS
     Dosage: INTRAVENOUS
     Route: 042
     Dates: start: 20010906
  2. LIPITOR [Concomitant]
  3. DILTIAZEM [Concomitant]
  4. SYNTHROID [Concomitant]
  5. CELEBREX [Concomitant]
  6. ARAVA [Concomitant]
  7. FOSAMAX [Concomitant]
  8. CALCIUM (CALCIUM) [Concomitant]
  9. MULTIVITAMIN (MULTIVITAMINS) [Concomitant]
  10. ASPIRIN [Concomitant]
  11. NITROGLYCERIN [Concomitant]

REACTIONS (2)
  - IMPLANT SITE INFECTION [None]
  - LABORATORY TEST ABNORMAL [None]
